FAERS Safety Report 5069632-4 (Version None)
Quarter: 2006Q3

REPORT INFORMATION
  Report Type: 
  Country: None (occurrence: None)
  Receive Date: 20060803
  Receipt Date: 20060724
  Transmission Date: 20061208
  Serious: Yes (Hospitalization)
  Sender: FDA-Public Use
  Company Number: US-ROCHE-456745

PATIENT
  Age: 53 Year
  Sex: Male
  Weight: 81.6 kg

DRUGS (3)
  1. KLONOPIN [Suspect]
     Indication: INSOMNIA RELATED TO ANOTHER MENTAL CONDITION
     Route: 048
     Dates: start: 20040215
  2. KLONOPIN [Suspect]
     Route: 048
     Dates: end: 20060515
  3. CELEBREX [Suspect]
     Indication: ARTHRITIS
     Route: 048
     Dates: start: 20040215, end: 20060515

REACTIONS (2)
  - ATRIAL FIBRILLATION [None]
  - EJECTION FRACTION DECREASED [None]
